FAERS Safety Report 7591757-X (Version None)
Quarter: 2011Q2

REPORT INFORMATION
  Report Type: 
  Country: None (occurrence: None)
  Receive Date: 20110627
  Receipt Date: 20110614
  Transmission Date: 20111010
  Serious: Yes (Other)
  Sender: FDA-Public Use
  Company Number: 2011-00656

PATIENT
  Age: 15 Month
  Sex: Male
  Weight: 10.4 kg

DRUGS (7)
  1. CEFOTAXIME [Suspect]
     Indication: ENDOCARDITIS
     Dosage: 500 MG (500 MG), ORAL
     Route: 048
     Dates: start: 20100305, end: 20110528
  2. VANCOMYCIN [Suspect]
     Indication: ENDOCARDITIS
     Dosage: 550 MG (550 MG) INTRAVENOUS
     Route: 042
     Dates: start: 20110502, end: 20110526
  3. SPIRONOLACTONE [Concomitant]
  4. RIFMPICIN [Suspect]
     Indication: ENDOCARDITIS
     Dosage: 68 MG (68 MG), ORAL
     Route: 048
     Dates: start: 20110502, end: 20110526
  5. FRUSEMIDE [Suspect]
     Indication: CARDIAC DISORDER
     Dosage: 5 MG (5 MG) ORAL
     Route: 048
     Dates: start: 20100305, end: 20110528
  6. ASPIRIN [Concomitant]
  7. NYSTATIN [Concomitant]

REACTIONS (3)
  - DRUG INTERACTION [None]
  - PAPULE [None]
  - RASH ERYTHEMATOUS [None]
